FAERS Safety Report 7647160-7 (Version None)
Quarter: 2011Q3

REPORT INFORMATION
  Report Type: 
  Country: None (occurrence: None)
  Receive Date: 20110801
  Receipt Date: 20110721
  Transmission Date: 20111222
  Serious: Yes (Hospitalization, Other)
  Sender: FDA-Public Use
  Company Number: US-JNJFOC-20110709198

PATIENT
  Age: 10 Year
  Sex: Male

DRUGS (1)
  1. RISPERIDONE [Suspect]
     Indication: INTENTIONAL DRUG MISUSE
     Route: 048

REACTIONS (5)
  - INTENTIONAL DRUG MISUSE [None]
  - UNRESPONSIVE TO STIMULI [None]
  - MYDRIASIS [None]
  - TACHYCARDIA [None]
  - DYSARTHRIA [None]
